FAERS Safety Report 24135624 (Version 1)
Quarter: 2024Q3

REPORT INFORMATION
  Report Type: Spontaneous
  Country: US (occurrence: US)
  Receive Date: 20240725
  Receipt Date: 20240725
  Transmission Date: 20241016
  Serious: No
  Sender: BRISTOL MYERS SQUIBB
  Company Number: US-BRISTOL-MYERS SQUIBB COMPANY-2024-116814

PATIENT
  Age: 77 Year
  Sex: Male

DRUGS (2)
  1. THALOMID [Suspect]
     Active Substance: THALIDOMIDE
     Indication: Arteriovenous malformation
     Dosage: TAKE 1 CAPSULE WHOLE BY MOUTH ON AN EMPTY STOMACH AT LEAST 1 HR AFTER MEAL EVERY NIGHT AT BEDTIME FO
     Route: 048
     Dates: start: 20240709
  2. THALOMID [Suspect]
     Active Substance: THALIDOMIDE
     Indication: Melaena

REACTIONS (1)
  - Off label use [Unknown]
